FAERS Safety Report 5809971-X (Version None)
Quarter: 2008Q3

REPORT INFORMATION
  Report Type: 
  Country: None (occurrence: None)
  Receive Date: 20080715
  Receipt Date: 20080709
  Transmission Date: 20090109
  Serious: Yes (Hospitalization)
  Sender: FDA-Public Use
  Company Number: CA-TEVA-174130USA

PATIENT
  Sex: Male
  Weight: 88.6 kg

DRUGS (4)
  1. FLUOROURACIL [Suspect]
     Indication: COLORECTAL CANCER METASTATIC
     Route: 040
     Dates: start: 20080313, end: 20080611
  2. FOLINIC ACID [Suspect]
     Route: 042
     Dates: start: 20080313, end: 20080611
  3. IRINOTECAN HCL [Suspect]
     Indication: COLON CANCER METASTATIC
     Route: 042
     Dates: start: 20080313, end: 20080611
  4. BLINDED THERAPY [Suspect]
     Indication: COLORECTAL CANCER METASTATIC
     Dosage: EVERY 28 DAYS
     Route: 048
     Dates: start: 20080313

REACTIONS (1)
  - CEREBROVASCULAR ACCIDENT [None]
